FAERS Safety Report 15017633 (Version 1)
Quarter: 2018Q2

REPORT INFORMATION
  Report Type: Spontaneous
  Country: US (occurrence: US)
  Receive Date: 20180615
  Receipt Date: 20180615
  Transmission Date: 20180711
  Serious: No
  Sender: FDA-Public Use
  Company Number: US-TEVA-2018-US-905416

PATIENT
  Sex: Male

DRUGS (1)
  1. CLONAZEPAM. [Suspect]
     Active Substance: CLONAZEPAM
     Indication: PANIC DISORDER
     Route: 065

REACTIONS (7)
  - Drug ineffective [Unknown]
  - Dizziness [Unknown]
  - Fear [Unknown]
  - Disorientation [Unknown]
  - Abdominal discomfort [Unknown]
  - Nausea [Unknown]
  - Product substitution issue [Unknown]
